FAERS Safety Report 12765475 (Version 1)
Quarter: 2016Q3

REPORT INFORMATION
  Report Type: Spontaneous
  Country: US (occurrence: US)
  Receive Date: 20160915
  Receipt Date: 20160915
  Transmission Date: 20161109
  Serious: No
  Sender: FDA-Public Use
  Company Number: None

PATIENT
  Age: 53 Year
  Sex: Male

DRUGS (1)
  1. IMATINIB MESYLATE 100MG RANBAXY [Suspect]
     Active Substance: IMATINIB MESYLATE
     Dosage: 100MG 3 TABLETS 2 TIMES A DAY BY MOUTH
     Route: 048
     Dates: start: 20160526

REACTIONS (3)
  - Sunburn [None]
  - Condition aggravated [None]
  - Product substitution issue [None]

NARRATIVE: CASE EVENT DATE: 20160526
